FAERS Safety Report 7419708 (Version 5)
Quarter: 2013Q1

REPORT INFORMATION
  Report Type: Spontaneous
  Country: FR (occurrence: None)
  Receive Date: 20100426
  Receipt Date: 20121106
  Transmission Date: 20140127
  Serious: Yes (Life-Threatening, Hospitalization, Other)
  Sender: FDA-Public Use
  Company Number: 2010022431

PATIENT
  Age: 6 Year
  Sex: Male

DRUGS (7)
  1. HAEMATE P [Suspect]
     Indication: IMMUNOSUPPRESSANT DRUG THERAPY
     Dosage: 2 ML 1X/MINUTE, INTRAVENOUS
     Dates: start: 200702, end: 200911
  2. HAEMATE P [Suspect]
     Dosage: 2 ML 1X/MINUTE, INTRAVENOUS
     Dates: start: 200702, end: 200911
  3. FEIBA [Concomitant]
  4. VANCOMYCIN (VANCOMYCIN) [Concomitant]
  5. AMIKLIN (AMIKACIN) [Concomitant]
  6. OXACILLIN [Concomitant]
  7. SPECIAFOLDINE (FOLIC ACID) [Concomitant]

REACTIONS (7)
  - General physical health deterioration [None]
  - Headache [None]
  - Pyrexia [None]
  - Drug ineffective [None]
  - Device related sepsis [None]
  - Glomerulonephritis [None]
  - Endocarditis [None]
